FAERS Safety Report 7231284-2 (Version None)
Quarter: 2011Q1

REPORT INFORMATION
  Report Type: 
  Country: None (occurrence: None)
  Receive Date: 20110118
  Receipt Date: 20110114
  Transmission Date: 20110831
  Serious: Yes (Hospitalization)
  Sender: FDA-Public Use
  Company Number: IT-TEVA-263281ISR

PATIENT
  Sex: Female

DRUGS (2)
  1. RISPERDONE [Suspect]
  2. OXCARBAZEPINE [Suspect]

REACTIONS (3)
  - TRANSAMINASES INCREASED [None]
  - URTICARIA [None]
  - LIVER DISORDER [None]
